FAERS Safety Report 13407063 (Version 1)
Quarter: 2017Q2

REPORT INFORMATION
  Report Type: Spontaneous
  Country: US (occurrence: US)
  Receive Date: 20170405
  Receipt Date: 20170405
  Transmission Date: 20170830
  Serious: Yes (Hospitalization, Other)
  Sender: FDA-Public Use
  Company Number: US-SAOL THERAPEUTICS-0700713039

PATIENT
  Sex: Male

DRUGS (1)
  1. BACLOFEN. [Suspect]
     Active Substance: BACLOFEN
     Indication: MUSCLE SPASTICITY
     Dosage: UNK
     Route: 037

REACTIONS (8)
  - Device failure [Unknown]
  - Peripheral swelling [Unknown]
  - Implant site pain [Unknown]
  - Musculoskeletal stiffness [Unknown]
  - Pain [Unknown]
  - Paraesthesia [Unknown]
  - Complication associated with device [Unknown]
  - Malaise [Unknown]
